FAERS Safety Report 17021555 (Version 1)
Quarter: 2019Q4

REPORT INFORMATION
  Report Type: Spontaneous
  Country: US (occurrence: US)
  Receive Date: 20191008
  Receipt Date: 20191008
  Transmission Date: 20200122
  Serious: No
  Sender: FDA-Public Use
  Company Number: None

PATIENT
  Age: 21 Year
  Sex: Female

DRUGS (1)
  1. RAPAMUNE [Suspect]
     Active Substance: SIROLIMUS
     Route: 062
     Dates: start: 20191008

REACTIONS (2)
  - Wrong technique in product usage process [None]
  - Product preparation issue [None]

NARRATIVE: CASE EVENT DATE: 20191008
